FAERS Safety Report 6951169-6 (Version None)
Quarter: 2010Q3

REPORT INFORMATION
  Report Type: 
  Country: None (occurrence: None)
  Receive Date: 20100828
  Receipt Date: 20100315
  Transmission Date: 20110219
  Serious: No
  Sender: FDA-Public Use
  Company Number: US-ABBOTT-10P-163-0632851-00

PATIENT
  Sex: Female
  Weight: 72.64 kg

DRUGS (3)
  1. NIASPAN [Suspect]
     Indication: BLOOD CHOLESTEROL INCREASED
     Dosage: AT BEDTIME
     Route: 048
     Dates: start: 20100312, end: 20100314
  2. PROCARDIA XL [Concomitant]
     Indication: HYPERTENSION
  3. TEMAZEPAM [Concomitant]
     Indication: INSOMNIA

REACTIONS (4)
  - CHILLS [None]
  - FEELING HOT [None]
  - PARAESTHESIA [None]
  - RESTLESSNESS [None]
